FAERS Safety Report 6866006-8 (Version None)
Quarter: 2010Q3

REPORT INFORMATION
  Report Type: 
  Country: None (occurrence: None)
  Receive Date: 20100719
  Receipt Date: 20100702
  Transmission Date: 20110219
  Serious: Yes (Hospitalization, Other)
  Sender: FDA-Public Use
  Company Number: 2010002738

PATIENT
  Age: 66 Year
  Sex: Female
  Weight: 52.6 kg

DRUGS (6)
  1. ERLOTINIB HYDROCHLORIDE [Suspect]
     Indication: LUNG ADENOCARCINOMA
     Dosage: 150 MG, QD, ORAL
     Route: 048
     Dates: start: 20081001, end: 20081110
  2. NAPROXEN [Suspect]
     Indication: PRODUCT USED FOR UNKNOWN INDICATION
     Dosage: 600 MG, QD, ORAL
     Route: 048
  3. ZOLPIDEM TARTRATE [Concomitant]
  4. ASTOMIN (DIMEMORFAN PHOSPHATE) [Concomitant]
  5. ALTAT (ROXATIDINE ACETATE HYDROCHLORIDE) [Concomitant]
  6. FERROMIA (FERROUS CITRATE) [Concomitant]

REACTIONS (5)
  - GASTRIC ULCER [None]
  - HAEMOGLOBIN DECREASED [None]
  - RASH [None]
  - SKIN LESION [None]
  - SKIN ULCER [None]
